FAERS Safety Report 8430692-1 (Version None)
Quarter: 2012Q2

REPORT INFORMATION
  Report Type: 
  Country: None (occurrence: None)
  Receive Date: 20120612
  Receipt Date: 20120601
  Transmission Date: 20120825
  Serious: Yes (Other)
  Sender: FDA-Public Use
  Company Number: SE-JNJFOC-20120603147

PATIENT
  Sex: Female

DRUGS (2)
  1. IMURAN [Suspect]
     Indication: CROHN'S DISEASE
     Route: 065
  2. REMICADE [Suspect]
     Indication: CROHN'S DISEASE
     Route: 042

REACTIONS (9)
  - BACTERIAL INFECTION [None]
  - DYSPNOEA [None]
  - PYREXIA [None]
  - AUTOIMMUNE DISORDER [None]
  - CHEST PAIN [None]
  - PERICARDIAL EFFUSION [None]
  - JOINT STIFFNESS [None]
  - HEADACHE [None]
  - MYALGIA [None]
